FAERS Safety Report 12250454 (Version 2)
Quarter: 2016Q2

REPORT INFORMATION
  Report Type: Report from Study
  Country: CA (occurrence: CA)
  Receive Date: 20160408
  Receipt Date: 20160412
  Transmission Date: 20160815
  Serious: Yes (Other)
  Sender: FDA-Public Use
  Company Number: PHHY2016CA032887

PATIENT
  Sex: Female

DRUGS (2)
  1. CICLOSPORIN [Suspect]
     Active Substance: CYCLOSPORINE
     Indication: CHRONIC SPONTANEOUS URTICARIA
     Dosage: 2 DF (2 CAPSULES TWICE A DAY), BID
     Route: 048
  2. METHOTREXATE [Concomitant]
     Active Substance: METHOTREXATE
     Indication: PRODUCT USED FOR UNKNOWN INDICATION
     Route: 065

REACTIONS (7)
  - Rash generalised [Recovered/Resolved]
  - Product use issue [Unknown]
  - Eczema [Unknown]
  - Multiple allergies [Unknown]
  - Urticaria [Recovered/Resolved]
  - Alopecia [Unknown]
  - Suicidal ideation [Unknown]
